FAERS Safety Report 11909166 (Version 4)
Quarter: 2017Q1

REPORT INFORMATION
  Report Type: Report from Study
  Country: US (occurrence: US)
  Receive Date: 20160112
  Receipt Date: 20170305
  Transmission Date: 20170428
  Serious: Yes (Other)
  Sender: FDA-Public Use
  Company Number: US-BEH-2016057757

PATIENT
  Age: 63 Year
  Sex: Female
  Weight: 83.9 kg

DRUGS (2)
  1. ZEMAIRA [Suspect]
     Active Substance: .ALPHA.1-PROTEINASE INHIBITOR HUMAN
     Indication: ALPHA-1 ANTI-TRYPSIN DEFICIENCY
     Dosage: 4 VIALS WEEKLY
     Route: 042
     Dates: start: 20151001
  2. ZEMAIRA [Suspect]
     Active Substance: .ALPHA.1-PROTEINASE INHIBITOR HUMAN
     Dosage: 5 VIALS WEEKLY
     Route: 042
     Dates: start: 20161101

REACTIONS (2)
  - Cancer surgery [Recovered/Resolved]
  - Hepatic cancer recurrent [Recovered/Resolved]

NARRATIVE: CASE EVENT DATE: 20170102
